FAERS Safety Report 24106873 (Version 2)
Quarter: 2024Q3

REPORT INFORMATION
  Report Type: Spontaneous
  Country: US (occurrence: US)
  Receive Date: 20240717
  Receipt Date: 20240815
  Transmission Date: 20241017
  Serious: No
  Sender: BAUSCH AND LOMB
  Company Number: US-BAUSCHBL-2024BNL029852

PATIENT
  Age: 72 Year
  Sex: Female
  Weight: 76 kg

DRUGS (7)
  1. MIEBO [Suspect]
     Active Substance: PERFLUOROHEXYLOCTANE
     Indication: Dry eye
     Route: 047
     Dates: start: 2024
  2. MIEBO [Suspect]
     Active Substance: PERFLUOROHEXYLOCTANE
     Dosage: 1-2 DROPS A DAY
     Route: 047
  3. RESTASIS [Concomitant]
     Active Substance: CYCLOSPORINE
     Indication: Product used for unknown indication
  4. LISINOPRIL [Concomitant]
     Active Substance: LISINOPRIL
     Indication: Product used for unknown indication
     Dosage: 5 MG
  5. ASPIRIN [Concomitant]
     Active Substance: ASPIRIN
     Indication: Product used for unknown indication
     Dosage: 81 MG
  6. VITAMIN D [Concomitant]
     Active Substance: VITAMIN D NOS
     Indication: Product used for unknown indication
  7. HOMOCYSTEINE RESIST [Concomitant]
     Indication: Product used for unknown indication

REACTIONS (4)
  - Eyelid disorder [Recovering/Resolving]
  - Eye irritation [Recovering/Resolving]
  - Product residue present [Recovering/Resolving]
  - Vision blurred [Recovering/Resolving]

NARRATIVE: CASE EVENT DATE: 20240101
